FAERS Safety Report 4336344-1 (Version None)
Quarter: 2004Q2

REPORT INFORMATION
  Report Type: 
  Country: None (occurrence: None)
  Receive Date: 20040407
  Receipt Date: 20040323
  Transmission Date: 20050107
  Serious: Yes (Other)
  Sender: FDA-Public Use
  Company Number: USA040362916

PATIENT
  Sex: Female

DRUGS (2)
  1. FORTEO [Suspect]
  2. COUMADIN [Concomitant]

REACTIONS (2)
  - DRUG EFFECT INCREASED [None]
  - INTERNATIONAL NORMALISED RATIO INCREASED [None]
